FAERS Safety Report 7206748-8 (Version None)
Quarter: 2011Q1

REPORT INFORMATION
  Report Type: 
  Country: None (occurrence: None)
  Receive Date: 20110103
  Receipt Date: 20100817
  Transmission Date: 20110831
  Serious: Yes (Hospitalization, Other)
  Sender: FDA-Public Use
  Company Number: PHHO2010IL01394

PATIENT
  Sex: Female
  Weight: 18 kg

DRUGS (4)
  1. ACZ885 [Suspect]
     Indication: JUVENILE ARTHRITIS
     Dosage: 4 MG/KG
     Route: 058
     Dates: start: 20100111, end: 20100504
  2. ACZ885 [Suspect]
     Dosage: NO TREATMENT
  3. METHOTREXATE [Suspect]
  4. PREDNISONE [Suspect]

REACTIONS (11)
  - PNEUMONIA [None]
  - THORACIC CAVITY DRAINAGE [None]
  - FIBRIN D DIMER INCREASED [None]
  - COUGH [None]
  - LUNG CONSOLIDATION [None]
  - C-REACTIVE PROTEIN INCREASED [None]
  - PLEURAL EFFUSION [None]
  - SERUM FERRITIN INCREASED [None]
  - ABDOMINAL PAIN [None]
  - HISTIOCYTOSIS HAEMATOPHAGIC [None]
  - PYREXIA [None]
